FAERS Safety Report 6620337-5 (Version None)
Quarter: 2010Q1

REPORT INFORMATION
  Report Type: 
  Country: None (occurrence: None)
  Receive Date: 20100308
  Receipt Date: 20100308
  Transmission Date: 20100710
  Serious: Yes (Death)
  Sender: FDA-Public Use
  Company Number: None

PATIENT
  Sex: Male
  Weight: 13.5 kg

DRUGS (12)
  1. NIFURTIMOX 120MG TBS BAYER [Suspect]
     Indication: NEUROBLASTOMA
     Dosage: 30 MG/KG DAY PO DIV TID
     Route: 048
     Dates: end: 20100207
  2. CYCLOPHOSPHAMIDE/TROPOTECAN [Suspect]
     Indication: NEUROBLASTOMA
     Dosage: 158MG/0.48MG/IV X 5 DAYS
     Route: 042
     Dates: end: 20100115
  3. OXYCONTIN [Concomitant]
  4. OXYCODONE [Concomitant]
  5. MARINOL [Concomitant]
  6. SEPTRA [Concomitant]
  7. PREVACID [Concomitant]
  8. MIRALAX [Concomitant]
  9. NEURONTIN [Concomitant]
  10. ZOFRAN [Concomitant]
  11. TYLENOL-500 [Concomitant]
  12. BENADRYL [Concomitant]

REACTIONS (2)
  - MALIGNANT NEOPLASM PROGRESSION [None]
  - NEUROBLASTOMA [None]
